FAERS Safety Report 19299647 (Version 1)
Quarter: 2021Q2

REPORT INFORMATION
  Report Type: Spontaneous
  Country: US (occurrence: US)
  Receive Date: 20210524
  Receipt Date: 20210524
  Transmission Date: 20210717
  Serious: Yes (Hospitalization)
  Sender: FDA-Public Use
  Company Number: None

PATIENT
  Sex: Female

DRUGS (1)
  1. ZELBORAF [Suspect]
     Active Substance: VEMURAFENIB
     Indication: LANGERHANS^ CELL HISTIOCYTOSIS
     Dosage: 2 TABS (480MG) BID PO
     Route: 048
     Dates: start: 20210402

REACTIONS (9)
  - Infection [None]
  - Therapy interrupted [None]
  - Alopecia [None]
  - Paraesthesia [None]
  - Skin disorder [None]
  - Erythema [None]
  - Hypoaesthesia [None]
  - Palmar-plantar erythrodysaesthesia syndrome [None]
  - Blister [None]
